FAERS Safety Report 17370115 (Version 1)
Quarter: 2020Q1

REPORT INFORMATION
  Report Type: Spontaneous
  Country: JP (occurrence: JP)
  Receive Date: 20200205
  Receipt Date: 20200205
  Transmission Date: 20200409
  Serious: No
  Sender: FDA-Public Use
  Company Number: JP-ROCHE-2539553

PATIENT
  Age: 7 Month

DRUGS (2)
  1. INAVIR [LANINAMIVIR OCTANOATE] [Concomitant]
     Indication: INFLUENZA
     Dosage: DOSAGE IS UNCERTAIN.
     Route: 055
  2. TAMIFLU [Suspect]
     Active Substance: OSELTAMIVIR PHOSPHATE
     Indication: PRODUCT USED FOR UNKNOWN INDICATION
     Route: 063

REACTIONS (2)
  - Exposure via breast milk [Unknown]
  - Hypothermia [Unknown]
